FAERS Safety Report 12124431 (Version 1)
Quarter: 2016Q1

REPORT INFORMATION
  Report Type: Spontaneous
  Country: GB (occurrence: GB)
  Receive Date: 20160229
  Receipt Date: 20160229
  Transmission Date: 20160526
  Serious: Yes (Death)
  Sender: FDA-Public Use
  Company Number: GB-HOSPIRA-3182747

PATIENT

DRUGS (4)
  1. CETUXIMAB [Suspect]
     Active Substance: CETUXIMAB
     Indication: COLORECTAL CANCER METASTATIC
     Dosage: WEEKLY; LOADING DOSE 400 MG/M2
  2. PLACEBO [Suspect]
     Active Substance: UNSPECIFIED INGREDIENT
     Indication: COLORECTAL CANCER METASTATIC
     Route: 042
  3. IRINOTECAN HYDROCHLORIDE. [Suspect]
     Active Substance: IRINOTECAN HYDROCHLORIDE
     Indication: COLORECTAL CANCER METASTATIC
  4. DALOTUZUMAB [Suspect]
     Active Substance: DALOTUZUMAB
     Indication: COLORECTAL CANCER METASTATIC
     Dosage: 15 MG/KG LOADING DOSE FOLLOWED BY 7.5 MG/KG EVERY SECOND WEEK
     Route: 042

REACTIONS (1)
  - Pneumonia [Fatal]
